FAERS Safety Report 8074071-8 (Version None)
Quarter: 2012Q1

REPORT INFORMATION
  Report Type: 
  Country: None (occurrence: None)
  Receive Date: 20120126
  Receipt Date: 20120120
  Transmission Date: 20120608
  Serious: Yes (Death, Other)
  Sender: FDA-Public Use
  Company Number: US-CELGENEUS-163-21880-11122587

PATIENT
  Sex: Female

DRUGS (2)
  1. DECADRON [Concomitant]
     Indication: MULTIPLE MYELOMA
     Route: 065
  2. REVLIMID [Suspect]
     Indication: MULTIPLE MYELOMA
     Dosage: 25 MILLIGRAM
     Route: 048
     Dates: start: 20111101

REACTIONS (6)
  - CARDIAC DISORDER [None]
  - URINARY TRACT INFECTION [None]
  - ANAEMIA [None]
  - MULTIPLE MYELOMA [None]
  - CACHEXIA [None]
  - HYPOTENSION [None]
